FAERS Safety Report 10362450 (Version 2)
Quarter: 2014Q4

REPORT INFORMATION
  Report Type: Spontaneous
  Country: GB (occurrence: GB)
  Receive Date: 20140805
  Receipt Date: 20141203
  Transmission Date: 20150528
  Serious: Yes (Hospitalization, Other)
  Sender: FDA-Public Use
  Company Number: PHHY2014GB092465

PATIENT
  Age: 49 Year
  Sex: Female

DRUGS (9)
  1. MESALAZINE [Suspect]
     Active Substance: MESALAMINE
     Indication: COLITIS
     Dosage: 1 G, BID
     Route: 048
     Dates: start: 20140702, end: 20140715
  2. GABAPENTIN. [Concomitant]
     Active Substance: GABAPENTIN
  3. PARACETAMOL [Concomitant]
     Active Substance: ACETAMINOPHEN
  4. SIMVASTATIN. [Concomitant]
     Active Substance: SIMVASTATIN
  5. BUDESONIDE. [Suspect]
     Active Substance: BUDESONIDE
     Indication: ENTEROCOLITIS HAEMORRHAGIC
     Dosage: 9 MG, QD
     Route: 048
     Dates: start: 20140702, end: 20140715
  6. AMITRIPTYLINE [Concomitant]
     Active Substance: AMITRIPTYLINE
  7. ASPIRIN. [Concomitant]
     Active Substance: ASPIRIN
  8. CALCICHEW D3 [Concomitant]
     Active Substance: CALCIUM\CHOLECALCIFEROL
  9. LANSOPRAZOLE. [Concomitant]
     Active Substance: LANSOPRAZOLE

REACTIONS (3)
  - Vasculitic rash [Not Recovered/Not Resolved]
  - Urticaria [Not Recovered/Not Resolved]
  - Thrombocytopenia [Not Recovered/Not Resolved]

NARRATIVE: CASE EVENT DATE: 20140712
